FAERS Safety Report 5021685-5 (Version None)
Quarter: 2006Q2

REPORT INFORMATION
  Report Type: 
  Country: None (occurrence: None)
  Receive Date: 20060605
  Receipt Date: 20060522
  Transmission Date: 20061013
  Serious: Yes (Hospitalization, Other)
  Sender: FDA-Public Use
  Company Number: 2006066818

PATIENT
  Sex: Female
  Weight: 56.246 kg

DRUGS (3)
  1. LYRICA [Suspect]
     Indication: NEUROPATHY PERIPHERAL
     Dosage: 2 IN 1 D
     Dates: start: 20060512, end: 20060501
  2. ZOLOFT [Suspect]
     Indication: ILL-DEFINED DISORDER
     Dates: start: 20060501
  3. ALL OTHER THERAPEUTIC PRODUCTS (ALL OTHER THERAPEUTIC PRODUCTS) [Concomitant]

REACTIONS (4)
  - ATRIAL FIBRILLATION [None]
  - HEART RATE INCREASED [None]
  - PALPITATIONS [None]
  - TREATMENT NONCOMPLIANCE [None]
